APPROVED DRUG PRODUCT: ADIPEX-P
Active Ingredient: PHENTERMINE HYDROCHLORIDE
Strength: 37.5MG
Dosage Form/Route: CAPSULE;ORAL
Application: A088023 | Product #001
Applicant: TEVA PHARMACEUTICALS USA INC
Approved: Aug 2, 1983 | RLD: Yes | RS: No | Type: DISCN